FAERS Safety Report 21613804 (Version 1)
Quarter: 2022Q4

REPORT INFORMATION
  Report Type: Spontaneous
  Country: CN (occurrence: None)
  Receive Date: 20221118
  Receipt Date: 20221118
  Transmission Date: 20230112
  Serious: Yes (Other)
  Sender: FDA-Public Use
  Company Number: 2022A377998

PATIENT
  Age: 26298 Day
  Sex: Female
  Weight: 55 kg

DRUGS (32)
  1. DAPAGLIFLOZIN [Suspect]
     Active Substance: DAPAGLIFLOZIN
     Indication: Cerebral haemorrhage
     Route: 048
     Dates: start: 20221103, end: 20221110
  2. DAPAGLIFLOZIN [Suspect]
     Active Substance: DAPAGLIFLOZIN
     Indication: Hypertension
     Route: 048
     Dates: start: 20221103, end: 20221110
  3. DAPAGLIFLOZIN [Suspect]
     Active Substance: DAPAGLIFLOZIN
     Indication: Type 2 diabetes mellitus
     Route: 048
     Dates: start: 20221103, end: 20221110
  4. DAPAGLIFLOZIN [Suspect]
     Active Substance: DAPAGLIFLOZIN
     Indication: Cerebral infarction
     Route: 048
     Dates: start: 20221103, end: 20221110
  5. PIRACETAM [Suspect]
     Active Substance: PIRACETAM
     Indication: Cerebral haemorrhage
     Route: 048
     Dates: start: 20221103, end: 20221110
  6. PIRACETAM [Suspect]
     Active Substance: PIRACETAM
     Indication: Hypertension
     Route: 048
     Dates: start: 20221103, end: 20221110
  7. PIRACETAM [Suspect]
     Active Substance: PIRACETAM
     Indication: Cerebral infarction
     Route: 048
     Dates: start: 20221103, end: 20221110
  8. PIRACETAM [Suspect]
     Active Substance: PIRACETAM
     Indication: Type 2 diabetes mellitus
     Route: 048
     Dates: start: 20221103, end: 20221110
  9. METFORMIN HYDROCHLORIDE [Suspect]
     Active Substance: METFORMIN HYDROCHLORIDE
     Indication: Cerebral haemorrhage
     Route: 048
     Dates: start: 20221103, end: 20221110
  10. METFORMIN HYDROCHLORIDE [Suspect]
     Active Substance: METFORMIN HYDROCHLORIDE
     Indication: Hypertension
     Route: 048
     Dates: start: 20221103, end: 20221110
  11. METFORMIN HYDROCHLORIDE [Suspect]
     Active Substance: METFORMIN HYDROCHLORIDE
     Indication: Cerebral infarction
     Route: 048
     Dates: start: 20221103, end: 20221110
  12. METFORMIN HYDROCHLORIDE [Suspect]
     Active Substance: METFORMIN HYDROCHLORIDE
     Indication: Type 2 diabetes mellitus
     Route: 048
     Dates: start: 20221103, end: 20221110
  13. BETAHISTINE HYDROCHLORIDE [Suspect]
     Active Substance: BETAHISTINE HYDROCHLORIDE
     Indication: Cerebral haemorrhage
     Route: 048
     Dates: start: 20221103, end: 20221110
  14. BETAHISTINE HYDROCHLORIDE [Suspect]
     Active Substance: BETAHISTINE HYDROCHLORIDE
     Indication: Hypertension
     Route: 048
     Dates: start: 20221103, end: 20221110
  15. BETAHISTINE HYDROCHLORIDE [Suspect]
     Active Substance: BETAHISTINE HYDROCHLORIDE
     Indication: Type 2 diabetes mellitus
     Route: 048
     Dates: start: 20221103, end: 20221110
  16. BETAHISTINE HYDROCHLORIDE [Suspect]
     Active Substance: BETAHISTINE HYDROCHLORIDE
     Indication: Cerebral infarction
     Route: 048
     Dates: start: 20221103, end: 20221110
  17. NIFEDIPINE [Suspect]
     Active Substance: NIFEDIPINE
     Indication: Cerebral haemorrhage
     Route: 048
     Dates: start: 20221103, end: 20221109
  18. NIFEDIPINE [Suspect]
     Active Substance: NIFEDIPINE
     Indication: Hypertension
     Route: 048
     Dates: start: 20221103, end: 20221109
  19. NIFEDIPINE [Suspect]
     Active Substance: NIFEDIPINE
     Indication: Cerebral infarction
     Route: 048
     Dates: start: 20221103, end: 20221109
  20. NIFEDIPINE [Suspect]
     Active Substance: NIFEDIPINE
     Indication: Type 2 diabetes mellitus
     Route: 048
     Dates: start: 20221103, end: 20221109
  21. ORYZANOL [Suspect]
     Active Substance: GAMMA ORYZANOL
     Indication: Cerebral haemorrhage
     Route: 048
     Dates: start: 20221003, end: 20221108
  22. ORYZANOL [Suspect]
     Active Substance: GAMMA ORYZANOL
     Indication: Hypertension
     Route: 048
     Dates: start: 20221003, end: 20221108
  23. ORYZANOL [Suspect]
     Active Substance: GAMMA ORYZANOL
     Indication: Type 2 diabetes mellitus
     Route: 048
     Dates: start: 20221003, end: 20221108
  24. ORYZANOL [Suspect]
     Active Substance: GAMMA ORYZANOL
     Indication: Cerebral infarction
     Route: 048
     Dates: start: 20221003, end: 20221108
  25. SIMVASTATIN [Suspect]
     Active Substance: SIMVASTATIN
     Indication: Cerebral haemorrhage
     Route: 048
     Dates: start: 20221103, end: 20221108
  26. SIMVASTATIN [Suspect]
     Active Substance: SIMVASTATIN
     Indication: Hypertension
     Route: 048
     Dates: start: 20221103, end: 20221108
  27. SIMVASTATIN [Suspect]
     Active Substance: SIMVASTATIN
     Indication: Cerebral infarction
     Route: 048
     Dates: start: 20221103, end: 20221108
  28. SIMVASTATIN [Suspect]
     Active Substance: SIMVASTATIN
     Indication: Type 2 diabetes mellitus
     Route: 048
     Dates: start: 20221103, end: 20221108
  29. ACARBOSE [Suspect]
     Active Substance: ACARBOSE
     Indication: Cerebral haemorrhage
     Route: 048
     Dates: start: 20221103, end: 20221110
  30. ACARBOSE [Suspect]
     Active Substance: ACARBOSE
     Indication: Hypertension
     Route: 048
     Dates: start: 20221103, end: 20221110
  31. ACARBOSE [Suspect]
     Active Substance: ACARBOSE
     Indication: Type 2 diabetes mellitus
     Route: 048
     Dates: start: 20221103, end: 20221110
  32. ACARBOSE [Suspect]
     Active Substance: ACARBOSE
     Indication: Cerebral infarction
     Route: 048
     Dates: start: 20221103, end: 20221110

REACTIONS (1)
  - Eczema [Not Recovered/Not Resolved]

NARRATIVE: CASE EVENT DATE: 20221109
